FAERS Safety Report 8473626-6 (Version None)
Quarter: 2012Q2

REPORT INFORMATION
  Report Type: 
  Country: None (occurrence: None)
  Receive Date: 20120628
  Receipt Date: 20110901
  Transmission Date: 20120825
  Serious: Yes (Death)
  Sender: FDA-Public Use
  Company Number: US-MYLANLABS-2011S1014808

PATIENT
  Age: 30 Year
  Sex: Male

DRUGS (13)
  1. RISPERDAL [Concomitant]
  2. ACARBOSE [Concomitant]
     Route: 048
  3. CLOZAPINE [Suspect]
     Dates: start: 20101001
  4. GEMFIBROZIL [Concomitant]
     Route: 048
  5. SIMVASTATIN [Concomitant]
     Route: 048
  6. DEPAKOTE ER [Concomitant]
     Dosage: 500MG
  7. CLOZAPINE [Suspect]
     Indication: SCHIZOPHRENIA, PARANOID TYPE
     Dates: start: 20101001
  8. LIPITOR [Concomitant]
  9. GLIPIZIDE [Concomitant]
     Route: 048
  10. TOPROL-XL [Concomitant]
  11. LISINOPRIL [Concomitant]
     Route: 048
  12. ACTOS [Concomitant]
     Route: 048
  13. METFORMIN HCL [Concomitant]

REACTIONS (1)
  - CARDIAC ARREST [None]
